FAERS Safety Report 24691733 (Version 1)
Quarter: 2024Q4

REPORT INFORMATION
  Report Type: Spontaneous
  Country: GB (occurrence: GB)
  Receive Date: 20241203
  Receipt Date: 20241203
  Transmission Date: 20250114
  Serious: Yes (Other)
  Sender: MYLAN
  Company Number: GB-MHRA-TPP4347476C1850495YC1732541021134

PATIENT
  Age: 35 Year
  Sex: Female
  Weight: 88 kg

DRUGS (8)
  1. DOXYCYCLINE [Suspect]
     Active Substance: DOXYCYCLINE
     Indication: Ill-defined disorder
     Dosage: 1 DOSAGE FORM, BID (TAKE TWO NOW THEN ONE DAILY FOR 6 DAYS)
     Route: 065
     Dates: start: 20241030
  2. DOXYCYCLINE [Suspect]
     Active Substance: DOXYCYCLINE
     Dosage: 1 DOSAGE FORM, QD (TAKE TWO NOW THEN ONE DAILY FOR 6 DAYS)
     Route: 065
     Dates: end: 20241106
  3. DIAZEPAM [Concomitant]
     Active Substance: DIAZEPAM
     Indication: Ill-defined disorder
     Dosage: 1 DOSAGE FORM, BID (ONE TWICE A DAY, ONLY IF NEEDED- SHORT COURSE USE)
     Route: 065
     Dates: start: 20241024, end: 20241114
  4. VENTOLIN [Concomitant]
     Active Substance: ALBUTEROL SULFATE
     Indication: Ill-defined disorder
     Dosage: 2 DOSAGE FORM (INHALE 2 DOSES AS NEEDED)
     Route: 065
     Dates: start: 20241030, end: 20241113
  5. MORPHINE SULFATE [Concomitant]
     Active Substance: MORPHINE SULFATE
     Indication: Ill-defined disorder
     Dosage: 2.5 MILLILITER (2.5 MILLILITER UP TO TO BE TAKEN FOUR TIMES DAILY)
     Route: 065
     Dates: start: 20231212
  6. PROPRANOLOL [Concomitant]
     Active Substance: PROPRANOLOL HYDROCHLORIDE
     Indication: Ill-defined disorder
     Dosage: 1 DOSAGE FORM, QD (TAKE ONE DAILY)
     Route: 065
     Dates: start: 20231212
  7. VENLAFAXINE [Concomitant]
     Active Substance: VENLAFAXINE HYDROCHLORIDE
     Indication: Ill-defined disorder
     Dosage: 2 DOSAGE FORM, AM (IN THE MORNING)
     Route: 065
     Dates: start: 20231212
  8. EMCOZIN [Concomitant]
     Indication: Ill-defined disorder
     Dosage: UNK (TAKE ONE OR TWO UP TO FOUR TIMES A DAY IF REQUIRED)
     Route: 065
     Dates: start: 20240627

REACTIONS (2)
  - Confusional state [Recovered/Resolved]
  - Rectal haemorrhage [Recovered/Resolved]
